FAERS Safety Report 4318892-3 (Version None)
Quarter: 2004Q1

REPORT INFORMATION
  Report Type: 
  Country: None (occurrence: None)
  Receive Date: 20040315
  Receipt Date: 20040301
  Transmission Date: 20041129
  Serious: Yes (Death)
  Sender: FDA-Public Use
  Company Number: 04P-114-0251882-00

PATIENT
  Age: 52 Year
  Sex: Female

DRUGS (1)
  1. DEPAKENE [Suspect]
     Indication: EPILEPSY
     Dosage: UNK
     Route: 065
     Dates: start: 20030801, end: 20031004

REACTIONS (5)
  - APATHY [None]
  - APHASIA [None]
  - EXANTHEM [None]
  - FATIGUE [None]
  - HEPATIC FAILURE [None]
